FAERS Safety Report 14997585 (Version 1)
Quarter: 2018Q2

REPORT INFORMATION
  Report Type: Spontaneous
  Country: US (occurrence: US)
  Receive Date: 20180611
  Receipt Date: 20180611
  Transmission Date: 20180711
  Serious: No
  Sender: FDA-Public Use
  Company Number: US-JNJFOC-20180532006

PATIENT
  Age: 70 Year
  Sex: Female
  Weight: 68.04 kg

DRUGS (4)
  1. WOMENS ROGAINE UNSCENTED [Suspect]
     Active Substance: MINOXIDIL
     Indication: ALOPECIA
     Route: 061
     Dates: start: 201803
  2. FINASTERIDE. [Concomitant]
     Active Substance: FINASTERIDE
     Indication: ALOPECIA
     Route: 065
  3. WOMENS ROGAINE UNSCENTED [Suspect]
     Active Substance: MINOXIDIL
     Indication: ALOPECIA
     Dosage: A LITTLE OVER HALF A CAPFUL
     Route: 061
     Dates: end: 201802
  4. CYMBALTA [Concomitant]
     Active Substance: DULOXETINE HYDROCHLORIDE
     Indication: DEPRESSION
     Route: 065

REACTIONS (2)
  - Alopecia [Not Recovered/Not Resolved]
  - Overdose [Unknown]

NARRATIVE: CASE EVENT DATE: 201804
